FAERS Safety Report 6530753-8 (Version None)
Quarter: 2010Q1

REPORT INFORMATION
  Report Type: 
  Country: None (occurrence: None)
  Receive Date: 20100108
  Receipt Date: 20090122
  Transmission Date: 20100710
  Serious: No
  Sender: FDA-Public Use
  Company Number: A0764809A

PATIENT
  Sex: Female

DRUGS (11)
  1. LOVAZA [Suspect]
     Dosage: 2CAP TWICE PER DAY
     Route: 048
     Dates: start: 20080401
  2. ALBUTEROL [Concomitant]
  3. PREDNISONE [Concomitant]
  4. WELCHOL [Concomitant]
  5. PLAVIX [Concomitant]
  6. ALLEGRA [Concomitant]
  7. ASPIRIN [Concomitant]
  8. PEPCID [Concomitant]
  9. METFORMIN HYDROCHLORIDE [Concomitant]
  10. HUMALOG [Concomitant]
  11. NASONEX [Concomitant]

REACTIONS (3)
  - CHILLS [None]
  - NECK PAIN [None]
  - SKIN ODOUR ABNORMAL [None]
